FAERS Safety Report 21914149 (Version 1)
Quarter: 2023Q1

REPORT INFORMATION
  Report Type: Spontaneous
  Country: US (occurrence: US)
  Receive Date: 20230126
  Receipt Date: 20230126
  Transmission Date: 20230417
  Serious: No
  Sender: FDA-Public Use
  Company Number: US-AMGEN-USASP2023011548

PATIENT
  Age: 66 Year
  Sex: Male

DRUGS (5)
  1. OTEZLA [Suspect]
     Active Substance: APREMILAST
     Indication: Psoriatic arthropathy
     Dosage: 30 MILLIGRAM, BID
     Route: 048
     Dates: start: 20221229
  2. ALL DAY ALLERGY [Concomitant]
     Active Substance: CETIRIZINE HYDROCHLORIDE
     Dosage: 10 MILLIGRAM
  3. PANTOPRAZOLE [Concomitant]
     Active Substance: PANTOPRAZOLE
     Dosage: 40 UNK
  4. PROBIOTIC COMPLEX [Concomitant]
  5. SUCRALFATE [Concomitant]
     Active Substance: SUCRALFATE
     Dosage: 1GM/10ML

REACTIONS (4)
  - Rhinorrhoea [Recovered/Resolved]
  - Ear infection [Recovered/Resolved]
  - Tympanic membrane perforation [Recovered/Resolved]
  - Decreased appetite [Recovered/Resolved]
